FAERS Safety Report 7350377-2 (Version None)
Quarter: 2011Q1

REPORT INFORMATION
  Report Type: 
  Country: None (occurrence: None)
  Receive Date: 20110314
  Receipt Date: 20110228
  Transmission Date: 20110831
  Serious: Yes (Hospitalization)
  Sender: FDA-Public Use
  Company Number: US-JNJFOC-20100608262

PATIENT

DRUGS (4)
  1. CHILDREN'S MOTRIN [Suspect]
     Indication: NASOPHARYNGITIS
     Route: 048
  2. CHILDREN'S ZYRTEC ALLERGY [Suspect]
     Route: 048
  3. CHILDREN'S MOTRIN [Suspect]
     Indication: MULTIPLE ALLERGIES
     Route: 048
  4. CHILDREN'S ZYRTEC ALLERGY [Suspect]
     Indication: HYPERSENSITIVITY
     Route: 048

REACTIONS (5)
  - PRODUCT QUALITY ISSUE [None]
  - PYREXIA [None]
  - SALMONELLOSIS [None]
  - DIARRHOEA [None]
  - WEIGHT DECREASED [None]
